FAERS Safety Report 6924120-2 (Version None)
Quarter: 2010Q3

REPORT INFORMATION
  Report Type: 
  Country: None (occurrence: None)
  Receive Date: 20100813
  Receipt Date: 20100805
  Transmission Date: 20110219
  Serious: Yes (Hospitalization, Other)
  Sender: FDA-Public Use
  Company Number: BR-ABBOTT-10P-020-0662460-00

PATIENT
  Sex: Female
  Weight: 74 kg

DRUGS (3)
  1. HUMIRA [Suspect]
     Indication: CROHN'S DISEASE
     Route: 058
     Dates: start: 20091201, end: 20091201
  2. IMURAN [Concomitant]
     Indication: IMMUNOSUPPRESSANT DRUG THERAPY
     Route: 048
  3. MESALAZINE [Concomitant]
     Indication: INFLAMMATION
     Route: 048

REACTIONS (3)
  - GASTROINTESTINAL INFLAMMATION [None]
  - INTESTINAL FISTULA [None]
  - INTESTINAL STENOSIS [None]
